FAERS Safety Report 23871527 (Version 1)
Quarter: 2024Q2

REPORT INFORMATION
  Report Type: Spontaneous
  Country: CN (occurrence: CN)
  Receive Date: 20240519
  Receipt Date: 20240519
  Transmission Date: 20240715
  Serious: Yes (Hospitalization)
  Sender: FDA-Public Use
  Company Number: CN-002147023-NVSC2024CN104609

PATIENT
  Age: 71 Year
  Sex: Female
  Weight: 50 kg

DRUGS (1)
  1. CARBAMAZEPINE [Suspect]
     Active Substance: CARBAMAZEPINE
     Indication: Facial spasm
     Dosage: 100 MG, BID
     Route: 048
     Dates: start: 20240417, end: 20240427

REACTIONS (4)
  - Rash [Not Recovered/Not Resolved]
  - Pyrexia [Unknown]
  - Drug eruption [Unknown]
  - Oral herpes [Unknown]

NARRATIVE: CASE EVENT DATE: 20240427
